FAERS Safety Report 11776887 (Version 2)
Quarter: 2015Q4

REPORT INFORMATION
  Report Type: Spontaneous
  Country: US (occurrence: US)
  Receive Date: 20151125
  Receipt Date: 20151204
  Transmission Date: 20160304
  Serious: Yes (Other)
  Sender: FDA-Public Use
  Company Number: US-ACTAVIS-2015-25615

PATIENT
  Age: 26 Year
  Sex: Male

DRUGS (2)
  1. COCAINE [Suspect]
     Active Substance: COCAINE
     Indication: DRUG DIVERSION
     Dosage: UNK
     Route: 048
  2. PHENYTOIN (AMALLC) [Suspect]
     Active Substance: PHENYTOIN
     Indication: DRUG DIVERSION
     Dosage: UNK
     Route: 048

REACTIONS (7)
  - Drug diversion [Recovered/Resolved]
  - Diplopia [Recovered/Resolved]
  - Dysarthria [Recovered/Resolved]
  - Confusional state [Recovered/Resolved]
  - Toxicity to various agents [Recovered/Resolved]
  - Nystagmus [Recovered/Resolved]
  - Cerebellar ataxia [Recovered/Resolved]
